FAERS Safety Report 19829252 (Version 1)
Quarter: 2021Q3

REPORT INFORMATION
  Report Type: Spontaneous
  Country: NL (occurrence: NL)
  Receive Date: 20210914
  Receipt Date: 20210914
  Transmission Date: 20211014
  Serious: Yes (Other)
  Sender: FDA-Public Use
  Company Number: NL-MYLANLABS-2021M1060939

PATIENT
  Age: 39 Year
  Sex: Female
  Weight: 100 kg

DRUGS (3)
  1. METHYLPREDNISOLON                  /00049601/ [Suspect]
     Active Substance: METHYLPREDNISOLONE
     Indication: PRODUCT USED FOR UNKNOWN INDICATION
     Dosage: 40 MILLIGRAM, 1X PER DAG 1000 MG, GEDURENDE 3 DAGEN
     Dates: start: 20210131, end: 20210202
  2. DEPO?PROVERA [Concomitant]
     Active Substance: MEDROXYPROGESTERONE ACETATE
     Dosage: SUSPENSIE VOOR INJECTIE, 150 MG/ML (MILLIGRAM PER MILLILITER)
  3. QUETIAPINE. [Suspect]
     Active Substance: QUETIAPINE
     Indication: PSYCHOTIC DISORDER
     Dosage: 450 MILLIGRAM, QD, 1DD 450 MG
     Dates: start: 202009

REACTIONS (2)
  - Lymphopenia [Not Recovered/Not Resolved]
  - Eosinopenia [Not Recovered/Not Resolved]

NARRATIVE: CASE EVENT DATE: 20210223
